FAERS Safety Report 25337902 (Version 1)
Quarter: 2025Q2

REPORT INFORMATION
  Report Type: Other
  Country: US (occurrence: US)
  Receive Date: 20250520
  Receipt Date: 20250520
  Transmission Date: 20250717
  Serious: Yes (Life-Threatening, Hospitalization)
  Sender: B BRAUN
  Company Number: US-B.Braun Medical Inc.-2177100

PATIENT
  Age: 67 Year
  Sex: Male

DRUGS (3)
  1. HEPARIN SODIUM IN DEXTROSE [Suspect]
     Active Substance: HEPARIN SODIUM
  2. PROTAMINE [Concomitant]
     Active Substance: PROTAMINE
  3. ANDEXANET ALFA [Suspect]
     Active Substance: ANDEXANET ALFA

REACTIONS (2)
  - Rebound effect [Recovered/Resolved]
  - Drug interaction [Recovered/Resolved]
